FAERS Safety Report 9431420 (Version 3)
Quarter: 2013Q3

REPORT INFORMATION
  Report Type: Spontaneous
  Country: US (occurrence: US)
  Receive Date: 20130730
  Receipt Date: 20130816
  Transmission Date: 20140515
  Serious: No
  Sender: FDA-Public Use
  Company Number: US-009507513-1307USA012717

PATIENT
  Age: 55 Year
  Sex: Male

DRUGS (2)
  1. PEG-INTRON [Suspect]
     Indication: HEPATITIS C
     Dosage: REDIPEN, UNK
     Route: 065
     Dates: start: 20130719
  2. REBETOL [Suspect]
     Indication: HEPATITIS C
     Dosage: UNK
     Route: 048
     Dates: start: 20130719

REACTIONS (5)
  - Paramnesia [Unknown]
  - Anxiety [Unknown]
  - Injection site reaction [Unknown]
  - Thyroid function test abnormal [Unknown]
  - Anxiety [Unknown]
